FAERS Safety Report 19707595 (Version 1)
Quarter: 2021Q3

REPORT INFORMATION
  Report Type: Spontaneous
  Country: US (occurrence: US)
  Receive Date: 20210817
  Receipt Date: 20210817
  Transmission Date: 20211014
  Serious: No
  Sender: FDA-Public Use
  Company Number: None

PATIENT
  Sex: Male
  Weight: 57.6 kg

DRUGS (22)
  1. JARDIANCE [Concomitant]
     Active Substance: EMPAGLIFLOZIN
  2. SIMVASTATIN. [Concomitant]
     Active Substance: SIMVASTATIN
  3. TUMS [Concomitant]
     Active Substance: CALCIUM CARBONATE
  4. HUMULIN N KWIK PEN [Concomitant]
  5. VITAMIN D2 [Concomitant]
     Active Substance: ERGOCALCIFEROL
  6. CAPECITABINE TABLETS [Suspect]
     Active Substance: CAPECITABINE
     Indication: ENDOCRINE NEOPLASM
     Route: 048
  7. LANREOTIDE [Concomitant]
     Active Substance: LANREOTIDE
  8. PROBIOTIC ACIDOPHILLUS [Concomitant]
  9. ONDANSETRON [Concomitant]
     Active Substance: ONDANSETRON
  10. IBUPROFEN. [Concomitant]
     Active Substance: IBUPROFEN
  11. MULTIVITAMIN [Concomitant]
     Active Substance: VITAMINS
  12. FLOMAX [Concomitant]
     Active Substance: TAMSULOSIN HYDROCHLORIDE
  13. ARICEPT [Concomitant]
     Active Substance: DONEPEZIL HYDROCHLORIDE
  14. CREON [Concomitant]
     Active Substance: PANCRELIPASE AMYLASE\PANCRELIPASE LIPASE\PANCRELIPASE PROTEASE
  15. IRBESARTAN. [Concomitant]
     Active Substance: IRBESARTAN
  16. OMEPRAZOLE. [Concomitant]
     Active Substance: OMEPRAZOLE
  17. ALEVE [Concomitant]
     Active Substance: NAPROXEN SODIUM
  18. TEMOZOLOMIDE CAPSULES [Suspect]
     Active Substance: TEMOZOLOMIDE
     Indication: ENDOCRINE NEOPLASM
     Route: 048
  19. METFORMIN [Concomitant]
     Active Substance: METFORMIN HYDROCHLORIDE
  20. TRIAMCINOLONE [Concomitant]
     Active Substance: TRIAMCINOLONE
  21. SENNA LAXATIVE [Concomitant]
     Active Substance: SENNOSIDES
  22. COLACE [Concomitant]
     Active Substance: DOCUSATE SODIUM

REACTIONS (1)
  - Disease progression [None]
